FAERS Safety Report 9205405 (Version 3)
Quarter: 2013Q3

REPORT INFORMATION
  Report Type: Report from Study
  Country: JP (occurrence: JP)
  Receive Date: 20130402
  Receipt Date: 20130812
  Transmission Date: 20140515
  Serious: Yes (Death, Hospitalization)
  Sender: FDA-Public Use
  Company Number: JP-ABBOTT-12P-087-1005135-00

PATIENT
  Age: 73 Year
  Sex: Male

DRUGS (12)
  1. LIPACREON [Suspect]
     Indication: PANCREATIC INSUFFICIENCY
     Route: 048
     Dates: start: 20120323, end: 20120327
  2. LIPACREON [Suspect]
     Dates: start: 20120328, end: 20120409
  3. LIPACREON [Suspect]
     Dates: start: 20120410, end: 20120425
  4. LIPACREON [Suspect]
     Dates: start: 20120426, end: 20121121
  5. LIPACREON [Suspect]
     Dates: start: 20121122, end: 20121231
  6. GEMZAR [Concomitant]
     Indication: PANCREATIC INSUFFICIENCY
     Dates: end: 20120607
  7. GEMZAR [Concomitant]
     Dates: start: 20120621, end: 20121108
  8. GIMERACIL W/OTERACIL POTASSIUM/TEGAFUR [Concomitant]
     Indication: PANCREATIC INSUFFICIENCY
     Route: 048
     Dates: start: 20120524, end: 20120530
  9. GIMERACIL W/OTERACIL POTASSIUM/TEGAFUR [Concomitant]
     Dates: start: 20120607, end: 20120613
  10. GIMERACIL W/OTERACIL POTASSIUM/TEGAFUR [Concomitant]
     Dates: start: 20120621, end: 20121114
  11. GIMERACIL W/OTERACIL POTASSIUM/TEGAFUR [Concomitant]
     Dates: start: 20121122, end: 20121212
  12. GIMERACIL W/OTERACIL POTASSIUM/TEGAFUR [Concomitant]
     Dates: start: 20121220, end: 20121229

REACTIONS (13)
  - Pancreatic carcinoma [Fatal]
  - Pancreatic insufficiency [Fatal]
  - Ileus [Not Recovered/Not Resolved]
  - Cancer pain [Not Recovered/Not Resolved]
  - Nausea [Not Recovered/Not Resolved]
  - Decreased appetite [Not Recovered/Not Resolved]
  - Fatigue [Not Recovered/Not Resolved]
  - Ascites [Not Recovered/Not Resolved]
  - Pleural effusion [Not Recovered/Not Resolved]
  - White blood cell count decreased [Recovered/Resolved]
  - Neutrophil count decreased [Recovered/Resolved]
  - Diarrhoea [Recovered/Resolved]
  - Vomiting [Recovered/Resolved]
